FAERS Safety Report 23937651 (Version 2)
Quarter: 2024Q2

REPORT INFORMATION
  Report Type: Report from Study
  Country: JP (occurrence: JP)
  Receive Date: 20240604
  Receipt Date: 20240606
  Transmission Date: 20240715
  Serious: Yes (Hospitalization, Other)
  Sender: FDA-Public Use
  Company Number: JP-UCBJ-CD202310725UCBPHAPROD

PATIENT
  Age: 6 Year
  Sex: Male
  Weight: 21.1 kg

DRUGS (59)
  1. FENFLURAMINE HYDROCHLORIDE [Suspect]
     Active Substance: FENFLURAMINE HYDROCHLORIDE
     Indication: Severe myoclonic epilepsy of infancy
     Dosage: 0.05 MILLIGRAM/KILOGRAM, 2X/DAY (BID)
     Route: 048
     Dates: start: 20230317, end: 20230320
  2. FENFLURAMINE HYDROCHLORIDE [Suspect]
     Active Substance: FENFLURAMINE HYDROCHLORIDE
     Dosage: 0.05 MILLIGRAM/KILOGRAM, 2X/DAY (BID)
     Route: 048
     Dates: start: 20230401
  3. FENFLURAMINE HYDROCHLORIDE [Suspect]
     Active Substance: FENFLURAMINE HYDROCHLORIDE
     Dosage: 0.1 MILLIGRAM/KILOGRAM, 2X/DAY (BID)
     Route: 048
     Dates: start: 20230407
  4. FENFLURAMINE HYDROCHLORIDE [Suspect]
     Active Substance: FENFLURAMINE HYDROCHLORIDE
     Dosage: 0.14 MILLIGRAM/KILOGRAM, 2X/DAY (BID)
     Route: 048
     Dates: start: 20230609
  5. FENFLURAMINE HYDROCHLORIDE [Suspect]
     Active Substance: FENFLURAMINE HYDROCHLORIDE
     Dosage: 0.16 MILLIGRAM/KILOGRAM, 2X/DAY (BID)
     Route: 048
     Dates: start: 20230901
  6. FENFLURAMINE HYDROCHLORIDE [Suspect]
     Active Substance: FENFLURAMINE HYDROCHLORIDE
     Dosage: 0.21 MILLIGRAM/KILOGRAM, 2X/DAY (BID)
     Route: 048
     Dates: start: 20230929
  7. FENFLURAMINE HYDROCHLORIDE [Suspect]
     Active Substance: FENFLURAMINE HYDROCHLORIDE
     Dosage: 0.18 MILLIGRAM/KILOGRAM, 2X/DAY (BID)
     Route: 048
     Dates: start: 20231027
  8. FENFLURAMINE HYDROCHLORIDE [Suspect]
     Active Substance: FENFLURAMINE HYDROCHLORIDE
     Dosage: 4 MILLILITER, ONCE DAILY (QD)  SYR
     Route: 048
  9. DIACOMIT [Concomitant]
     Active Substance: STIRIPENTOL
     Indication: Severe myoclonic epilepsy of infancy
     Dosage: 1000 MILLIGRAM PER DAY
     Route: 048
     Dates: start: 20230119
  10. DIACOMIT [Concomitant]
     Active Substance: STIRIPENTOL
     Dosage: 1250 MILLIGRAM PER DAY
     Route: 048
     Dates: start: 20230120, end: 20230316
  11. DIACOMIT [Concomitant]
     Active Substance: STIRIPENTOL
     Dosage: 1000 MILLIGRAM PER DAY
     Route: 048
     Dates: start: 20230317
  12. VALPROATE SODIUM [Concomitant]
     Active Substance: VALPROATE SODIUM
     Indication: Severe myoclonic epilepsy of infancy
     Dosage: 550 MILLIGRAM PER DAY
     Route: 048
     Dates: start: 20230308, end: 20230316
  13. VALPROATE SODIUM [Concomitant]
     Active Substance: VALPROATE SODIUM
     Dosage: 550 MILLIGRAM PER DAY
     Route: 048
     Dates: start: 20230317, end: 20240301
  14. VALPROATE SODIUM [Concomitant]
     Active Substance: VALPROATE SODIUM
     Dosage: 550 MILLIGRAM PER DAY
     Route: 048
     Dates: start: 20240302
  15. MYSTAN [Concomitant]
     Active Substance: CLOBAZAM
     Indication: Severe myoclonic epilepsy of infancy
     Dosage: 6 MILLIGRAM PER DAY
     Route: 048
  16. LEVETIRACETAM [Concomitant]
     Active Substance: LEVETIRACETAM
     Indication: Severe myoclonic epilepsy of infancy
     Dosage: 1200 MILLIGRAM PER DAY
     Route: 048
     Dates: start: 20230119
  17. LEVETIRACETAM [Concomitant]
     Active Substance: LEVETIRACETAM
     Dosage: 900 MILLIGRAM PER DAY
     Route: 048
     Dates: start: 20230120, end: 20230308
  18. LEVETIRACETAM [Concomitant]
     Active Substance: LEVETIRACETAM
     Dosage: 900 MILLIGRAM PER DAY
     Route: 048
     Dates: start: 20230315, end: 20231026
  19. LEVETIRACETAM [Concomitant]
     Active Substance: LEVETIRACETAM
     Dosage: 800 MILLIGRAM PER DAY
     Route: 048
     Dates: start: 20231027, end: 20231109
  20. LEVETIRACETAM [Concomitant]
     Active Substance: LEVETIRACETAM
     Dosage: 700 MILLIGRAM PER DAY
     Route: 048
     Dates: start: 20231110, end: 20231123
  21. LEVETIRACETAM [Concomitant]
     Active Substance: LEVETIRACETAM
     Dosage: 600 MILLIGRAM PER DAY
     Route: 048
     Dates: start: 20231224, end: 20240301
  22. LEVETIRACETAM [Concomitant]
     Active Substance: LEVETIRACETAM
     Dosage: 1400 MILLIGRAM PER DAY
     Route: 048
     Dates: start: 20240311
  23. LEVETIRACETAM [Concomitant]
     Active Substance: LEVETIRACETAM
     Indication: Severe myoclonic epilepsy of infancy
     Dosage: 900 MILLIGRAM PER DAY
     Route: 041
     Dates: start: 20230309, end: 20230314
  24. LEVETIRACETAM [Concomitant]
     Active Substance: LEVETIRACETAM
     Dosage: 1400 MILLIGRAM PER DAY
     Route: 041
     Dates: start: 20240302, end: 20240310
  25. LEVOCARNITINE [Concomitant]
     Active Substance: LEVOCARNITINE
     Indication: Prophylaxis
     Dosage: 6 MILLILITER PER DAY
     Route: 048
     Dates: start: 20231109
  26. LEVOCARNITINE [Concomitant]
     Active Substance: LEVOCARNITINE
     Dosage: 3 MILLILITER PER DAY
     Route: 048
     Dates: start: 20231110, end: 20240301
  27. LEVOCARNITINE [Concomitant]
     Active Substance: LEVOCARNITINE
     Dosage: 1000 MILLIGRAM PER DAY
     Route: 048
     Dates: start: 20240302, end: 20240306
  28. LEVOCARNITINE [Concomitant]
     Active Substance: LEVOCARNITINE
     Dosage: 3 MILLILITER PER DAY
     Route: 048
     Dates: start: 20240305
  29. MIDAZOLAM [Concomitant]
     Active Substance: MIDAZOLAM
     Indication: Severe myoclonic epilepsy of infancy
     Dosage: 112.8 MILLIGRAM PER DAY
     Dates: start: 202303, end: 202303
  30. MIDAZOLAM [Concomitant]
     Active Substance: MIDAZOLAM
     Dosage: 111.86  MILLIGRAM PER DAY
     Dates: start: 202303, end: 202303
  31. MIDAZOLAM [Concomitant]
     Active Substance: MIDAZOLAM
     Dosage: 67.68 MILLIGRAM PER DAY
     Dates: start: 202303, end: 202303
  32. MIDAZOLAM [Concomitant]
     Active Substance: MIDAZOLAM
     Dosage: 45.12 MILLIGRAM PER DAY
     Dates: start: 202303, end: 202303
  33. MIDAZOLAM [Concomitant]
     Active Substance: MIDAZOLAM
     Dosage: 22.56 MILLIGRAM PER DAY
     Dates: start: 202303, end: 202303
  34. MIDAZOLAM [Concomitant]
     Active Substance: MIDAZOLAM
     Dosage: 104 MILLIGRAM PER DAY
     Dates: start: 20230309, end: 20230313
  35. MIDAZOLAM [Concomitant]
     Active Substance: MIDAZOLAM
     Dosage: UNK
     Dates: start: 20231010, end: 20231012
  36. MIDAZOLAM [Concomitant]
     Active Substance: MIDAZOLAM
     Dosage: UNK
     Dates: start: 20231127, end: 20231130
  37. MIDAZOLAM [Concomitant]
     Active Substance: MIDAZOLAM
     Dosage: 180 MILLIGRAM PER DAY
     Dates: start: 20240302, end: 20240304
  38. MIDAZOLAM [Concomitant]
     Active Substance: MIDAZOLAM
     Dosage: 150 MILLIGRAM PER DAY
     Dates: start: 20240304, end: 20240305
  39. MIDAZOLAM [Concomitant]
     Active Substance: MIDAZOLAM
     Dosage: 132 MILLIGRAM PER DAY
     Dates: start: 20240305, end: 20240306
  40. MIDAZOLAM [Concomitant]
     Active Substance: MIDAZOLAM
     Dosage: 102 MILLIGRAM PER DAY
     Dates: start: 20240306, end: 20240307
  41. MIDAZOLAM [Concomitant]
     Active Substance: MIDAZOLAM
     Dosage: 66 MILLIGRAM PER DAY
     Dates: start: 20240307, end: 20240308
  42. MIDAZOLAM [Concomitant]
     Active Substance: MIDAZOLAM
     Dosage: 33 MILLIGRAM PER DAY
     Dates: start: 20240308, end: 20240309
  43. DIAMOX SEQUELS [Concomitant]
     Active Substance: ACETAZOLAMIDE
     Indication: Severe myoclonic epilepsy of infancy
     Dosage: 200 MILLIGRAM PER DAY
     Dates: start: 20230312, end: 20230312
  44. DIAZEPAM [Concomitant]
     Active Substance: DIAZEPAM
     Indication: Severe myoclonic epilepsy of infancy
     Dosage: 10 MILLIGRAM PER DAY
     Route: 054
  45. VITAMIN B6 [Concomitant]
     Active Substance: PYRIDOXINE HYDROCHLORIDE
     Indication: Prophylaxis
     Dosage: 650 MILLIGRAM
     Route: 048
     Dates: start: 20240304, end: 20240310
  46. DEXTROMETHORPHAN HYDROBROMIDE\LYSOZYME HYDROCHLORIDE\POTASSIUM CRESOLS [Concomitant]
     Active Substance: DEXTROMETHORPHAN HYDROBROMIDE\LYSOZYME HYDROCHLORIDE\POTASSIUM CRESOLSULFONATE
     Indication: Prophylaxis
     Dosage: 75 MILLIGRAM
     Route: 048
     Dates: start: 20240304, end: 20240310
  47. FUROSEMIDE [Concomitant]
     Active Substance: FUROSEMIDE
     Indication: Oedema
     Dosage: 5 MILLIGRAM PER DAY
     Dates: start: 20240304, end: 20240305
  48. FUROSEMIDE [Concomitant]
     Active Substance: FUROSEMIDE
     Dosage: 15 MILLIGRAM PER DAY
     Dates: start: 20240306, end: 20240309
  49. SPIRONOLACTONE [Concomitant]
     Active Substance: SPIRONOLACTONE
     Indication: Oedema
     Dosage: 15 MILLIGRAM
     Route: 048
     Dates: start: 20240306, end: 20240309
  50. MIYA-BM [Concomitant]
     Active Substance: CLOSTRIDIUM BUTYRICUM SPORES STRAIN M-55
     Indication: Constipation
     Dosage: 2.4 GRAM PER DAY
     Route: 048
     Dates: start: 20240307, end: 20240312
  51. SODIUM FERROUS CITRATE [Concomitant]
     Active Substance: SODIUM FERROUS CITRATE
     Indication: Anaemia
     Dosage: 50 MILLIGRAM PER DAY
     Route: 048
     Dates: start: 20240311
  52. ACETAMINOPHEN [Concomitant]
     Active Substance: ACETAMINOPHEN
     Indication: Product used for unknown indication
     Dosage: 1333 MILLIGRAM, PER DAY
     Dates: start: 20240302, end: 20240309
  53. VEKLURY [Concomitant]
     Active Substance: REMDESIVIR
     Indication: Product used for unknown indication
     Dosage: 78.125 MILLIGRAM
     Dates: start: 20240302, end: 20240305
  54. AMPICILLIN SODIUM\SULBACTAM SODIUM [Concomitant]
     Active Substance: AMPICILLIN SODIUM\SULBACTAM SODIUM
     Indication: Product used for unknown indication
     Dosage: 3.75 GRAM, PER DAY
     Dates: start: 20240302, end: 20240308
  55. VITAMEDIN [BENFOTIAMINE;CYANOCOBALAMIN;PYRIDOXINE HYDROCHLORIDE] [Concomitant]
     Indication: Prophylaxis
     Dosage: UNK
     Dates: start: 20240302, end: 20240306
  56. ASCORBIC ACID [Concomitant]
     Active Substance: ASCORBIC ACID
     Indication: Prophylaxis
     Dosage: 1000 MILLIGRAM PER DAY
     Dates: start: 20240302, end: 20240306
  57. VEEN D [Concomitant]
     Active Substance: CALCIUM CHLORIDE\DEXTROSE\POTASSIUM CHLORIDE\SODIUM ACETATE\SODIUM CHLORIDE
     Indication: Fluid replacement
     Dosage: 1500 MILLIGRAM PER DAY
     Dates: start: 20240302, end: 20240310
  58. ISOZOL MITSUBISHI [Concomitant]
     Indication: Severe myoclonic epilepsy of infancy
     Dosage: 50 MILLIGRAM PER DAY
     Dates: start: 20240302, end: 20240302
  59. MIDAZOLAM HYDROCHLORIDE [Concomitant]
     Active Substance: MIDAZOLAM HYDROCHLORIDE
     Indication: Severe myoclonic epilepsy of infancy
     Dosage: .5 MILLIGRAM, PER DAY
     Route: 048

REACTIONS (11)
  - Status epilepticus [Recovered/Resolved]
  - COVID-19 [Recovered/Resolved]
  - Dizziness [Recovered/Resolved]
  - Oedema [Recovered/Resolved]
  - Anaemia [Not Recovered/Not Resolved]
  - Bacterial infection [Recovered/Resolved]
  - Pyrexia [Recovered/Resolved]
  - Mechanical ventilation [Unknown]
  - Diarrhoea [Recovered/Resolved]
  - Prescribed underdose [Unknown]
  - Off label use [Unknown]

NARRATIVE: CASE EVENT DATE: 20230101
